FAERS Safety Report 5847850-2 (Version None)
Quarter: 2008Q3

REPORT INFORMATION
  Report Type: 
  Country: None (occurrence: None)
  Receive Date: 20080818
  Receipt Date: 20080811
  Transmission Date: 20090109
  Serious: Yes (Death, Hospitalization, Disabling)
  Sender: FDA-Public Use
  Company Number: US-BAYER-200829738NA

PATIENT
  Age: 60 Year
  Sex: Female

DRUGS (1)
  1. CIPRO [Suspect]
     Indication: URINARY TRACT INFECTION
     Dates: start: 20071201

REACTIONS (7)
  - ABDOMINAL PAIN UPPER [None]
  - AMYOTROPHIC LATERAL SCLEROSIS [None]
  - DIARRHOEA [None]
  - HYPOPHAGIA [None]
  - MOBILITY DECREASED [None]
  - RETCHING [None]
  - WEIGHT DECREASED [None]
